FAERS Safety Report 6844928-1 (Version None)
Quarter: 2010Q3

REPORT INFORMATION
  Report Type: 
  Country: None (occurrence: None)
  Receive Date: 20100715
  Receipt Date: 20100708
  Transmission Date: 20110219
  Serious: Yes (Other)
  Sender: FDA-Public Use
  Company Number: US-WYE-H16052310

PATIENT

DRUGS (2)
  1. TYGACIL [Suspect]
     Dosage: UNKNOWN LOW LOADING DOSE
     Dates: start: 20100701, end: 20100101
  2. TYGACIL [Suspect]
     Dates: start: 20100101

REACTIONS (1)
  - TRISMUS [None]
